FAERS Safety Report 9462363 (Version 1)
Quarter: 2013Q3

REPORT INFORMATION
  Report Type: Spontaneous
  Country: US (occurrence: None)
  Receive Date: 20130815
  Receipt Date: 20130815
  Transmission Date: 20140515
  Serious: Yes (Other)
  Sender: FDA-Public Use
  Company Number: None

PATIENT
  Age: 83 Year
  Sex: Female

DRUGS (7)
  1. COMBIVENT RESPIMAT [Suspect]
     Indication: CHRONIC OBSTRUCTIVE PULMONARY DISEASE
     Dosage: 1 PUFF, RESPIRATORY
     Dates: start: 20130618, end: 20130813
  2. LASIX [Concomitant]
  3. BYSTOLIC [Concomitant]
  4. KC1 10MEQ [Concomitant]
  5. LOW DOSE ASPIRIN [Concomitant]
  6. ONE-A-DAY VITAMIN AND FISH OIL [Concomitant]
  7. APAP [Concomitant]

REACTIONS (4)
  - Oropharyngeal pain [None]
  - Cough [None]
  - Lymphadenitis [None]
  - Muscular weakness [None]
